FAERS Safety Report 20011692 (Version 2)
Quarter: 2021Q4

REPORT INFORMATION
  Report Type: Spontaneous
  Country: AR (occurrence: AR)
  Receive Date: 20211029
  Receipt Date: 20211108
  Transmission Date: 20220303
  Serious: Yes (Death, Other)
  Sender: FDA-Public Use
  Company Number: AR-ABBVIE-21K-007-4138328-00

PATIENT

DRUGS (1)
  1. VENETOCLAX [Suspect]
     Active Substance: VENETOCLAX
     Indication: Acute myeloid leukaemia
     Route: 048

REACTIONS (8)
  - Aplasia [Fatal]
  - Febrile neutropenia [Fatal]
  - Acute myeloid leukaemia [Fatal]
  - Cytopenia [Unknown]
  - Hepatotoxicity [Unknown]
  - Intestinal perforation [Unknown]
  - Myocardial infarction [Unknown]
  - Haemorrhagic stroke [Unknown]
